FAERS Safety Report 22299758 (Version 1)
Quarter: 2023Q2

REPORT INFORMATION
  Report Type: Spontaneous
  Country: US (occurrence: US)
  Receive Date: 20230509
  Receipt Date: 20230509
  Transmission Date: 20230721
  Serious: Yes (Life-Threatening)
  Sender: FDA-Public Use
  Company Number: US-002147023-NVSC2023US105985

PATIENT
  Sex: Female

DRUGS (1)
  1. RECLAST [Suspect]
     Active Substance: ZOLEDRONIC ACID
     Indication: Product used for unknown indication
     Dosage: 5 MG/100 ML, QMO (INFUSION ROUTE)
     Route: 065
     Dates: start: 20230505

REACTIONS (6)
  - Feeling abnormal [Recovered/Resolved]
  - Bone pain [Unknown]
  - Body temperature increased [Recovered/Resolved]
  - Pain [Unknown]
  - Headache [Unknown]
  - Inappropriate schedule of product administration [Unknown]
